FAERS Safety Report 18445126 (Version 2)
Quarter: 2020Q4

REPORT INFORMATION
  Report Type: Spontaneous
  Country: TR (occurrence: TR)
  Receive Date: 20201030
  Receipt Date: 20201130
  Transmission Date: 20210114
  Serious: Yes (Hospitalization, Other)
  Sender: FDA-Public Use
  Company Number: TR-EMD SERONO-9194464

PATIENT
  Age: 37 Year
  Sex: Female

DRUGS (3)
  1. MAVENCLAD [Suspect]
     Active Substance: CLADRIBINE
     Indication: MULTIPLE SCLEROSIS
     Dosage: FIRST CYCLE THERAPY: FIVE TABLETS FOR 5 DAYS
     Dates: start: 20200915, end: 20200919
  2. MAVENCLAD [Suspect]
     Active Substance: CLADRIBINE
     Dosage: SECOND CYCLE THERAPY: FIVE TABLETS FOR 5 DAYS AS DAY DOSE AFTER ONE DAY
     Dates: start: 20201015, end: 20201020
  3. TENOVIRAL [Concomitant]
     Active Substance: TENOFOVIR DISOPROXIL
     Indication: ANTIVIRAL TREATMENT
     Dates: start: 20200908

REACTIONS (8)
  - Urticaria [Unknown]
  - Gamma-glutamyltransferase increased [Unknown]
  - Lymphocyte count decreased [Unknown]
  - Hypotension [Recovered/Resolved]
  - Aspartate aminotransferase increased [Unknown]
  - Angioedema [Unknown]
  - Blood bilirubin increased [Unknown]
  - Alanine aminotransferase increased [Unknown]

NARRATIVE: CASE EVENT DATE: 202010
